FAERS Safety Report 19228384 (Version 2)
Quarter: 2021Q4

REPORT INFORMATION
  Report Type: Spontaneous
  Country: FR (occurrence: FR)
  Receive Date: 20210506
  Receipt Date: 20211007
  Transmission Date: 20220304
  Serious: Yes (Hospitalization)
  Sender: FDA-Public Use
  Company Number: None

PATIENT
  Age: 94 Year
  Sex: Male

DRUGS (11)
  1. TAHOR [Interacting]
     Active Substance: ATORVASTATIN CALCIUM
     Indication: Dyslipidaemia
     Dosage: 20 MG, 1X/DAY
     Route: 048
     Dates: start: 20120601
  2. XARELTO [Suspect]
     Active Substance: RIVAROXABAN
     Indication: Atrial fibrillation
     Dosage: 15 MG, 1X/DAY
     Route: 048
     Dates: start: 20180901, end: 20210320
  3. PREDNISOLONE [Suspect]
     Active Substance: PREDNISOLONE
     Indication: Pain
     Dosage: 10 MG IN THE MORNING
     Route: 048
     Dates: start: 20210318, end: 20210320
  4. FUROSEMIDE [Interacting]
     Active Substance: FUROSEMIDE
     Indication: Myocardial ischaemia
     Dosage: 40 MG, 1X/DAY
     Route: 048
     Dates: start: 20190629
  5. PAROXETINE [Interacting]
     Active Substance: PAROXETINE
     Indication: Depression
     Dosage: 20 MG, 1X/DAY
     Route: 048
     Dates: start: 20210318, end: 20210320
  6. IXPRIM [Concomitant]
     Active Substance: ACETAMINOPHEN\TRAMADOL HYDROCHLORIDE
     Indication: Pain
     Dosage: 1 DF, 1X/DAY
     Route: 048
     Dates: start: 20130901
  7. OMEPRAZOLE [Concomitant]
     Active Substance: OMEPRAZOLE
     Indication: Gastric ulcer
     Dosage: 1 DF, 1X/DAY
     Route: 048
     Dates: start: 20090101
  8. MOLSIDOMINE [Concomitant]
     Active Substance: MOLSIDOMINE
     Indication: Myocardial ischaemia
     Dosage: 2 MG, 3X/DAY
     Route: 048
     Dates: start: 20100326
  9. METOPROLOL [Concomitant]
     Active Substance: METOPROLOL
     Indication: Myocardial ischaemia
     Dosage: 100 MG, 1X/DAY
     Route: 048
     Dates: start: 20191201
  10. TAMSULOSIN HYDROCHLORIDE [Concomitant]
     Active Substance: TAMSULOSIN HYDROCHLORIDE
     Indication: Prostate cancer
     Dosage: 0.4 MG, 1X/DAY
     Route: 048
     Dates: start: 20090101
  11. INNOHEP [Concomitant]
     Active Substance: TINZAPARIN SODIUM
     Indication: Thrombosis prophylaxis
     Dosage: 1 DF, 1X/DAY
     Route: 058
     Dates: start: 20210326

REACTIONS (2)
  - Rectal haemorrhage [Recovered/Resolved]
  - Drug interaction [Recovered/Resolved]

NARRATIVE: CASE EVENT DATE: 20210320
